FAERS Safety Report 7912051-0 (Version None)
Quarter: 2011Q4

REPORT INFORMATION
  Report Type: 
  Country: None (occurrence: None)
  Receive Date: 20111114
  Receipt Date: 20111104
  Transmission Date: 20120403
  Serious: Yes (Death, Life-Threatening, Hospitalization)
  Sender: FDA-Public Use
  Company Number: ES-BAYER-2011-107070

PATIENT
  Age: 50 Year
  Sex: Male

DRUGS (6)
  1. NEXAVAR [Suspect]
     Indication: HEPATIC NEOPLASM MALIGNANT
     Dosage: 400 MG, HS
     Route: 048
     Dates: start: 20101029, end: 20101202
  2. SUMIAL [Concomitant]
     Indication: PORTAL HYPERTENSION
     Route: 048
     Dates: start: 20101029, end: 20101206
  3. DIAZEPAM [Concomitant]
     Route: 048
     Dates: start: 20090101, end: 20101206
  4. REYATAZ [Suspect]
     Indication: HIV INFECTION
     Route: 048
     Dates: start: 20070101, end: 20101206
  5. ESOMEPRAZOLE [Suspect]
     Indication: PROPHYLAXIS
     Route: 048
     Dates: start: 20101029, end: 20101202
  6. TRUVADA [Suspect]
     Indication: HIV INFECTION
     Route: 048
     Dates: start: 20080101, end: 20101206

REACTIONS (4)
  - MUSCULOSKELETAL PAIN [None]
  - TERMINAL STATE [None]
  - BLOOD BILIRUBIN INCREASED [None]
  - CHOLESTASIS [None]
